FAERS Safety Report 4600991-X (Version None)
Quarter: 2005Q1

REPORT INFORMATION
  Report Type: 
  Country: None (occurrence: None)
  Receive Date: 20050307
  Receipt Date: 20050307
  Transmission Date: 20050727
  Serious: Yes (Hospitalization, Other)
  Sender: FDA-Public Use
  Company Number: None

PATIENT
  Age: 55 Year
  Sex: Female
  Weight: 64.8644 kg

DRUGS (10)
  1. CAMPTOSAR [Suspect]
     Indication: BREAST CANCER METASTATIC
     Dosage: 120 MG IV 8 WK 2 ON 1 OFF
     Route: 042
     Dates: start: 20050218
  2. TAXOTERE [Suspect]
     Dosage: 43 MG IV Q WK 2 ON 1 OFF
     Route: 042
     Dates: start: 20050225
  3. ANZEMET [Concomitant]
  4. OXYCODONE HCL [Concomitant]
  5. ATIVAN [Concomitant]
  6. DECADRON [Concomitant]
  7. LEVOTHYROXINE [Concomitant]
  8. ZOMETA [Concomitant]
  9. VICODIN [Concomitant]
  10. ATROPINE [Concomitant]

REACTIONS (4)
  - ABDOMINAL PAIN [None]
  - NEUTROPHIL COUNT DECREASED [None]
  - PYREXIA [None]
  - WHITE BLOOD CELL COUNT DECREASED [None]
